FAERS Safety Report 25168634 (Version 1)
Quarter: 2025Q2

REPORT INFORMATION
  Report Type: Spontaneous
  Country: CH (occurrence: CH)
  Receive Date: 20250407
  Receipt Date: 20250407
  Transmission Date: 20250716
  Serious: Yes (Other)
  Sender: NOVARTIS
  Company Number: CH-SANDOZ-SDZ2025CH019686

PATIENT
  Sex: Female

DRUGS (2)
  1. LETROZOLE [Suspect]
     Active Substance: LETROZOLE
     Indication: Product used for unknown indication
     Route: 065
  2. DIETARY SUPPLEMENT [Concomitant]
     Active Substance: DIETARY SUPPLEMENT
     Indication: Hormone level abnormal
     Dosage: 1 DOSAGE FORM, QD (1 DF, QD,FROM TROMMSDORF  DE, PILL)
     Route: 065

REACTIONS (5)
  - Arrhythmia [Unknown]
  - Mood swings [Unknown]
  - Arthralgia [Unknown]
  - Chest pain [Unknown]
  - Palpitations [Unknown]
